FAERS Safety Report 9748948 (Version 2)
Quarter: 2013Q4

REPORT INFORMATION
  Report Type: Spontaneous
  Country: US (occurrence: US)
  Receive Date: 20131212
  Receipt Date: 20131212
  Transmission Date: 20140711
  Serious: No
  Sender: FDA-Public Use
  Company Number: US-INCYTE CORPORATION-2013IN000473

PATIENT
  Age: 53 Year
  Sex: Female

DRUGS (4)
  1. JAKAFI [Suspect]
     Indication: MYELOFIBROSIS
     Dosage: 20 MG, BID
     Route: 048
     Dates: start: 20130212
  2. LANTUS [Concomitant]
  3. METFORMIN [Concomitant]
  4. HUMULIN [Concomitant]

REACTIONS (4)
  - Blood glucose decreased [Unknown]
  - Endodontic procedure [Unknown]
  - Dizziness [Unknown]
  - Weight increased [Unknown]
